FAERS Safety Report 5207655-2 (Version None)
Quarter: 2007Q1

REPORT INFORMATION
  Report Type: 
  Country: None (occurrence: None)
  Receive Date: 20070112
  Receipt Date: 20070104
  Transmission Date: 20070707
  Serious: Yes (Death, Hospitalization)
  Sender: FDA-Public Use
  Company Number: GB-PFIZER INC-2006148370

PATIENT
  Sex: Male

DRUGS (11)
  1. SU-011,248 [Suspect]
     Indication: GASTROINTESTINAL STROMAL TUMOUR
     Route: 048
  2. BENDROFLUAZIDE [Concomitant]
     Route: 048
  3. LOPERAMIDE HCL [Concomitant]
     Route: 048
  4. AMLODIPINE [Concomitant]
     Route: 048
  5. BISOPROLOL FUMARATE [Concomitant]
     Route: 048
  6. DEXAMETHASONE [Concomitant]
     Route: 048
  7. OMEPRAZOLE [Concomitant]
     Route: 048
  8. CYCLIZINE [Concomitant]
     Route: 048
  9. CO-CODAMOL [Concomitant]
     Route: 048
  10. CLEXANE [Concomitant]
     Route: 058
     Dates: start: 20060925
  11. PERSANTIN [Concomitant]
     Dates: start: 20060101, end: 20060101

REACTIONS (3)
  - CARDIAC ARREST [None]
  - CELLULITIS [None]
  - SINUS TACHYCARDIA [None]
